FAERS Safety Report 5776354-0 (Version None)
Quarter: 2008Q2

REPORT INFORMATION
  Report Type: 
  Country: None (occurrence: None)
  Receive Date: 20080618
  Receipt Date: 20080410
  Transmission Date: 20081010
  Serious: No
  Sender: FDA-Public Use
  Company Number: US-BAYER-200819927NA

PATIENT
  Age: 35 Year
  Sex: Female

DRUGS (1)
  1. YAZ [Suspect]
     Indication: CONTRACEPTION
     Route: 048
     Dates: start: 20080320, end: 20080409

REACTIONS (4)
  - ABDOMINAL DISTENSION [None]
  - BREAST TENDERNESS [None]
  - MOOD ALTERED [None]
  - WEIGHT INCREASED [None]
